FAERS Safety Report 9875870 (Version 1)
Quarter: 2014Q1

REPORT INFORMATION
  Report Type: Spontaneous
  Country: AR (occurrence: AR)
  Receive Date: 20140206
  Receipt Date: 20140206
  Transmission Date: 20141002
  Serious: Yes (Hospitalization, Other)
  Sender: FDA-Public Use
  Company Number: AR-AMGEN-ARGSP2014008184

PATIENT
  Age: 56 Year
  Sex: Female

DRUGS (2)
  1. ENBREL [Suspect]
     Indication: RHEUMATOID ARTHRITIS
     Dosage: 50 MG, WEEKLY
     Route: 065
     Dates: start: 20131202
  2. METHOTREXATE SODIUM [Suspect]
     Indication: PRODUCT USED FOR UNKNOWN INDICATION
     Dosage: 10.5 MG, 2X/WEEK
     Route: 065
     Dates: start: 20131202

REACTIONS (5)
  - Pain [Not Recovered/Not Resolved]
  - Decreased immune responsiveness [Recovering/Resolving]
  - Bacterial infection [Recovering/Resolving]
  - Abdominal abscess [Recovering/Resolving]
  - Anaemia [Recovering/Resolving]
